FAERS Safety Report 16695858 (Version 4)
Quarter: 2019Q4

REPORT INFORMATION
  Report Type: Spontaneous
  Country: US (occurrence: US)
  Receive Date: 20190813
  Receipt Date: 20191029
  Transmission Date: 20200122
  Serious: No
  Sender: FDA-Public Use
  Company Number: US-SA-2019SA219250

PATIENT
  Age: 53 Year
  Sex: Female
  Weight: 102.04 kg

DRUGS (11)
  1. TOCILIZUMAB. [Concomitant]
     Active Substance: TOCILIZUMAB
     Indication: ARTHRITIS
  2. ALIROCUMAB [Suspect]
     Active Substance: ALIROCUMAB
     Indication: HYPERCHOLESTEROLAEMIA
     Dosage: 150 MG, QOW
     Route: 058
     Dates: start: 20181212
  3. AZELASTINE. [Concomitant]
     Active Substance: AZELASTINE HYDROCHLORIDE
     Indication: HYPERSENSITIVITY
  4. HUMIRA [Concomitant]
     Active Substance: ADALIMUMAB
     Indication: RHEUMATOID ARTHRITIS
  5. XELJANZ [Concomitant]
     Active Substance: TOFACITINIB CITRATE
  6. METOPROLOL. [Concomitant]
     Active Substance: METOPROLOL
     Indication: PALPITATIONS
  7. CETIRIZINE [Concomitant]
     Active Substance: CETIRIZINE HYDROCHLORIDE
     Indication: HYPERSENSITIVITY
  8. MONTELUKAST SODIUM. [Concomitant]
     Active Substance: MONTELUKAST SODIUM
     Indication: HYPERSENSITIVITY
  9. BECLOMETASONE DIPROPIONATE [Concomitant]
     Active Substance: BECLOMETHASONE DIPROPIONATE
     Indication: ASTHMA
  10. FOLIC ACID. [Concomitant]
     Active Substance: FOLIC ACID
     Indication: PROPHYLAXIS
  11. NABUMETONE. [Concomitant]
     Active Substance: NABUMETONE
     Indication: ARTHRITIS

REACTIONS (1)
  - Glucose tolerance impaired [Recovered/Resolved]

NARRATIVE: CASE EVENT DATE: 20190220
